FAERS Safety Report 17059570 (Version 2)
Quarter: 2020Q2

REPORT INFORMATION
  Report Type: Report from Study
  Country: US (occurrence: US)
  Receive Date: 20191121
  Receipt Date: 20200520
  Transmission Date: 20200713
  Serious: No
  Sender: FDA-Public Use
  Company Number: PHHY2017US007801

PATIENT
  Age: 37 Year
  Sex: Male

DRUGS (3)
  1. GILENYA [Suspect]
     Active Substance: FINGOLIMOD HYDROCHLORIDE
     Indication: MULTIPLE SCLEROSIS
     Dosage: UNK, QD
     Route: 048
  2. COMBIGAN [Concomitant]
     Active Substance: BRIMONIDINE TARTRATE\TIMOLOL MALEATE
     Indication: PRODUCT USED FOR UNKNOWN INDICATION
     Dosage: UNK
     Route: 065
     Dates: start: 20160823
  3. XALATAN [Concomitant]
     Active Substance: LATANOPROST
     Indication: PRODUCT USED FOR UNKNOWN INDICATION
     Dosage: UNK
     Route: 065
     Dates: start: 20160823

REACTIONS (22)
  - Haemoglobin decreased [Unknown]
  - Vision blurred [Unknown]
  - Exercise tolerance decreased [Unknown]
  - Anogenital warts [Unknown]
  - Dysarthria [Unknown]
  - Haemoglobin decreased [Recovered/Resolved]
  - Nocturia [Unknown]
  - Papilloma viral infection [Unknown]
  - Concomitant disease aggravated [Unknown]
  - Postural tremor [Unknown]
  - Decreased appetite [Unknown]
  - Coordination abnormal [Unknown]
  - Cognitive disorder [Unknown]
  - Memory impairment [Unknown]
  - Muscular weakness [Unknown]
  - Contusion [Unknown]
  - Gait disturbance [Unknown]
  - Weight decreased [Unknown]
  - Contusion [Unknown]
  - Micturition urgency [Unknown]
  - Fatigue [Unknown]
  - Sensory disturbance [Unknown]

NARRATIVE: CASE EVENT DATE: 20160823
